FAERS Safety Report 18424856 (Version 1)
Quarter: 2020Q4

REPORT INFORMATION
  Report Type: Spontaneous
  Country: FR (occurrence: FR)
  Receive Date: 20201026
  Receipt Date: 20201026
  Transmission Date: 20210114
  Serious: No
  Sender: FDA-Public Use
  Company Number: FR-LUPIN PHARMACEUTICALS INC.-2020-06733

PATIENT
  Age: 47 Year
  Sex: Female

DRUGS (4)
  1. HYDROXYCHLOROQUINE [Suspect]
     Active Substance: HYDROXYCHLOROQUINE
     Indication: GRANULOMA
     Dosage: 400 MILLIGRAM, QD
     Route: 065
  2. CORTIVAZOL [Suspect]
     Active Substance: CORTIVAZOL
     Indication: GRANULOMA
     Dosage: 1 AMPOULE
     Route: 026
  3. ISOTRETINOIN. [Concomitant]
     Active Substance: ISOTRETINOIN
     Indication: FOLLICULITIS
     Dosage: 5 MG TO 30 MG, QD
     Route: 065
  4. ISOTRETINOIN. [Concomitant]
     Active Substance: ISOTRETINOIN
     Indication: ACNE

REACTIONS (1)
  - Drug ineffective [Unknown]
